FAERS Safety Report 16045639 (Version 4)
Quarter: 2024Q4

REPORT INFORMATION
  Report Type: Spontaneous
  Country: DE (occurrence: DE)
  Receive Date: 20190307
  Receipt Date: 20241025
  Transmission Date: 20250115
  Serious: Yes (Hospitalization, Disabling, Other)
  Sender: ACCORD
  Company Number: DE-ACCORD-110995

PATIENT
  Age: 69 Year
  Sex: Female

DRUGS (4)
  1. MITOMYCIN [Suspect]
     Active Substance: MITOMYCIN
     Indication: Breast cancer metastatic
     Dosage: AFTER LESS THAN 4 WEEKS
  2. PACLITAXEL [Suspect]
     Active Substance: PACLITAXEL
     Indication: Breast cancer metastatic
     Dosage: JUL-2010 140 MG/M2 EVERY 2 WKS, MAY-2012 DUE TO POLYNEUROPATHY, DISCONTINUED IN JUN-2012
     Dates: start: 201004, end: 201206
  3. BEVACIZUMAB [Suspect]
     Active Substance: BEVACIZUMAB
     Indication: Breast cancer metastatic
     Dosage: 49 TREATMENT CYCLES
  4. CAPECITABINE [Concomitant]
     Active Substance: CAPECITABINE
     Indication: Breast cancer metastatic

REACTIONS (2)
  - Atypical haemolytic uraemic syndrome [Recovered/Resolved]
  - Neuropathy peripheral [Recovering/Resolving]

NARRATIVE: CASE EVENT DATE: 20120501
